FAERS Safety Report 4367254-1 (Version None)
Quarter: 2004Q2

REPORT INFORMATION
  Report Type: 
  Country: None (occurrence: None)
  Receive Date: 20040524
  Receipt Date: 20040514
  Transmission Date: 20050107
  Serious: Yes (Hospitalization)
  Sender: FDA-Public Use
  Company Number: 2004213611US

PATIENT
  Age: 71 Year
  Sex: Male
  Weight: 85 kg

DRUGS (4)
  1. CAMPTOSAR [Suspect]
     Indication: NEOPLASM
     Dosage: 181 MG, CYCLIC
     Dates: start: 20020829, end: 20020926
  2. GEM231 (RNA-DNA SECOND GENERATION RI ANTISENSE) [Suspect]
     Indication: NEOPLASM
  3. ASPIRIN [Concomitant]
  4. IMODIUM [Concomitant]

REACTIONS (8)
  - CONDITION AGGRAVATED [None]
  - EYE IRRITATION [None]
  - EYE PAIN [None]
  - EYELID DISORDER [None]
  - EYELID OEDEMA [None]
  - HERPES ZOSTER [None]
  - PAIN EXACERBATED [None]
  - SKIN LESION [None]
